FAERS Safety Report 22153354 (Version 6)
Quarter: 2024Q2

REPORT INFORMATION
  Report Type: Report from Study
  Country: US (occurrence: US)
  Receive Date: 20230329
  Receipt Date: 20240510
  Transmission Date: 20240716
  Serious: No
  Sender: FDA-Public Use
  Company Number: US-ACADIA PHARMACEUTICALS INC.-ACA-2023-PIM-000907

PATIENT
  Sex: Male

DRUGS (3)
  1. NUPLAZID [Suspect]
     Active Substance: PIMAVANSERIN TARTRATE
     Indication: Parkinson^s disease
     Dosage: 34 MILLIGRAM, QD
     Route: 048
     Dates: start: 20211231
  2. NUPLAZID [Suspect]
     Active Substance: PIMAVANSERIN TARTRATE
     Dosage: 34 MILLIGRAM, QD
     Route: 048
  3. FUROSEMIDE [Concomitant]
     Active Substance: FUROSEMIDE
     Dosage: 20 MILLIGRAM

REACTIONS (13)
  - Product dose omission issue [Unknown]
  - Product dose omission issue [Unknown]
  - Nonspecific reaction [Unknown]
  - General physical health deterioration [Not Recovered/Not Resolved]
  - Condition aggravated [Unknown]
  - Drug ineffective [Not Recovered/Not Resolved]
  - Hallucination [Unknown]
  - Confusional state [Unknown]
  - Gait disturbance [Unknown]
  - Confusional state [Unknown]
  - Oedema peripheral [Unknown]
  - Confusional state [Unknown]
  - Hallucination [Unknown]
